FAERS Safety Report 6437957-3 (Version None)
Quarter: 2009Q4

REPORT INFORMATION
  Report Type: 
  Country: None (occurrence: None)
  Receive Date: 20091112
  Receipt Date: 20081211
  Transmission Date: 20100525
  Serious: No
  Sender: FDA-Public Use
  Company Number: US-ASTRAZENECA-2009UW17640

PATIENT
  Sex: Female

DRUGS (2)
  1. PRILOSEC OTC [Suspect]
     Indication: CHEST PAIN
     Dosage: 1 TABLET, 1 /DAY
     Route: 048
     Dates: start: 20081206, end: 20081211
  2. PRILOSEC OTC [Suspect]
     Indication: PAIN IN EXTREMITY
     Dosage: 1 TABLET, 1 /DAY
     Route: 048
     Dates: start: 20081206, end: 20081211

REACTIONS (4)
  - CONSTIPATION [None]
  - HEADACHE [None]
  - PHARYNGEAL OEDEMA [None]
  - THROAT TIGHTNESS [None]
